FAERS Safety Report 23645487 (Version 2)
Quarter: 2024Q2

REPORT INFORMATION
  Report Type: Report from Study
  Country: CA (occurrence: CA)
  Receive Date: 20240319
  Receipt Date: 20240414
  Transmission Date: 20240716
  Serious: Yes (Other)
  Sender: FDA-Public Use
  Company Number: CA-BoehringerIngelheim-2024-BI-015843

PATIENT
  Sex: Female

DRUGS (1)
  1. OFEV [Suspect]
     Active Substance: NINTEDANIB
     Indication: Idiopathic pulmonary fibrosis
     Route: 048
     Dates: start: 20210910

REACTIONS (2)
  - Idiopathic pulmonary fibrosis [Recovered/Resolved with Sequelae]
  - Idiopathic pulmonary fibrosis [Not Recovered/Not Resolved]
